FAERS Safety Report 4291290-7 (Version None)
Quarter: 2004Q1

REPORT INFORMATION
  Report Type: 
  Country: None (occurrence: None)
  Receive Date: 20040211
  Receipt Date: 20031204
  Transmission Date: 20041129
  Serious: No
  Sender: FDA-Public Use
  Company Number: US-GLAXOSMITHKLINE-A0441989A

PATIENT
  Age: 51 Year
  Sex: Male

DRUGS (2)
  1. PAROXETINE [Suspect]
     Dosage: 30MG PER DAY
     Route: 048
  2. GABAPENTIN [Concomitant]

REACTIONS (1)
  - ANXIETY [None]
